FAERS Safety Report 25111103 (Version 1)
Quarter: 2025Q1

REPORT INFORMATION
  Report Type: Spontaneous
  Country: US (occurrence: US)
  Receive Date: 20250324
  Receipt Date: 20250324
  Transmission Date: 20250408
  Serious: Yes (Other)
  Sender: CIPLA
  Company Number: US-CIPLA LTD.-2025US03282

PATIENT

DRUGS (1)
  1. BENZTROPINE MESYLATE [Suspect]
     Active Substance: BENZTROPINE MESYLATE
     Indication: Prophylaxis
     Route: 065

REACTIONS (25)
  - Arrhythmia [Unknown]
  - Apnoea [Unknown]
  - Coeliac disease [Unknown]
  - Diabetes mellitus [Unknown]
  - Syncope [Unknown]
  - Blood cholesterol increased [Unknown]
  - Photophobia [Unknown]
  - Tinnitus [Unknown]
  - Hyperacusis [Unknown]
  - Urticaria [Unknown]
  - Oedema [Unknown]
  - Extrapyramidal disorder [Unknown]
  - Arthralgia [Unknown]
  - Gastrooesophageal reflux disease [Unknown]
  - Granuloma [Unknown]
  - Hepatic steatosis [Unknown]
  - Cyst [Unknown]
  - Nodule [Unknown]
  - Disease recurrence [Unknown]
  - Neoplasm [Unknown]
  - Phlebitis [Unknown]
  - Hypertension [Unknown]
  - Hypotension [Unknown]
  - Oedema peripheral [Unknown]
  - Dry mouth [Unknown]
